FAERS Safety Report 8866438 (Version 1)
Quarter: 2012Q4

REPORT INFORMATION
  Report Type: Report from Study
  Country: GR (occurrence: GR)
  Receive Date: 20121025
  Receipt Date: 20121025
  Transmission Date: 20130627
  Serious: Yes (Hospitalization)
  Sender: FDA-Public Use
  Company Number: GR-INCYTE CORPORATION-2012IN001990

PATIENT
  Age: 66 Year
  Sex: Female

DRUGS (5)
  1. INC424 [Suspect]
     Indication: MYELOFIBROSIS
     Dosage: 20 mg, bid
     Route: 048
     Dates: start: 20111020, end: 20120829
  2. INC424 [Suspect]
     Dosage: UNK
     Route: 048
  3. ONE-ALPHA [Concomitant]
  4. FILICINE [Concomitant]
  5. XANAX [Concomitant]

REACTIONS (1)
  - Post procedural haemorrhage [Recovered/Resolved]
